FAERS Safety Report 24555674 (Version 2)
Quarter: 2024Q4

REPORT INFORMATION
  Report Type: Spontaneous
  Country: JP (occurrence: JP)
  Receive Date: 20241028
  Receipt Date: 20241125
  Transmission Date: 20250115
  Serious: Yes (Other)
  Sender: ROCHE
  Company Number: JP-ROCHE-10000116368

PATIENT
  Age: 56 Year
  Sex: Female

DRUGS (5)
  1. BEVACIZUMAB [Suspect]
     Active Substance: BEVACIZUMAB
     Indication: Ovarian cancer
     Route: 050
  2. BEVACIZUMAB [Suspect]
     Active Substance: BEVACIZUMAB
     Route: 042
  3. DOXORUBICIN [Concomitant]
     Active Substance: DOXORUBICIN
  4. CARBOPLATIN [Concomitant]
     Active Substance: CARBOPLATIN
     Dosage: AUC 6
  5. PACLITAXEL [Concomitant]
     Active Substance: PACLITAXEL

REACTIONS (1)
  - Hypersensitivity [Unknown]
